FAERS Safety Report 10075094 (Version 1)
Quarter: 2014Q2

REPORT INFORMATION
  Report Type: Spontaneous
  Country: US (occurrence: US)
  Receive Date: 20140414
  Receipt Date: 20140414
  Transmission Date: 20141212
  Serious: No
  Sender: FDA-Public Use
  Company Number: US-BIOGENIDEC-2014BI029491

PATIENT
  Age: 64 Year
  Sex: Female

DRUGS (17)
  1. TECFIDERA [Suspect]
     Indication: MULTIPLE SCLEROSIS
     Route: 048
     Dates: start: 20140305
  2. TECFIDERA [Suspect]
     Indication: MULTIPLE SCLEROSIS
     Route: 048
     Dates: start: 20140305
  3. TECFIDERA [Suspect]
     Indication: MULTIPLE SCLEROSIS
     Route: 048
     Dates: start: 20140317
  4. AMPYRA [Concomitant]
  5. ARMOUR THYROID [Concomitant]
  6. ASPIRIN EC [Concomitant]
  7. CALCIUM + D + K [Concomitant]
  8. CHONDROITIN SULFATE [Concomitant]
  9. GLUCOSAMINE CHONDROITIN [Concomitant]
  10. LUNESTA [Concomitant]
  11. OMEPRAZOLE [Concomitant]
  12. PLAQUENIL [Concomitant]
  13. SUPER B COMPLEX [Concomitant]
  14. TURMERIC CURCUMIN [Concomitant]
  15. BIOTIN [Concomitant]
  16. VITAMIN D [Concomitant]
  17. FISH OIL [Concomitant]

REACTIONS (4)
  - Abdominal distension [Not Recovered/Not Resolved]
  - Nausea [Not Recovered/Not Resolved]
  - Diarrhoea [Not Recovered/Not Resolved]
  - Dyspepsia [Unknown]
